FAERS Safety Report 20207062 (Version 1)
Quarter: 2021Q4

REPORT INFORMATION
  Report Type: Spontaneous
  Country: US (occurrence: None)
  Receive Date: 20211219
  Receipt Date: 20211219
  Transmission Date: 20220304
  Serious: Yes (Other)
  Sender: FDA-Public Use
  Company Number: None

PATIENT
  Age: 50 Year
  Sex: Male
  Weight: 60.75 kg

DRUGS (5)
  1. EMGALITY [Suspect]
     Active Substance: GALCANEZUMAB-GNLM
     Indication: Migraine
     Dosage: FREQUENCY : MONTHLY;?
     Route: 058
     Dates: start: 20211105, end: 20211205
  2. HYDROCODONE [Concomitant]
     Active Substance: HYDROCODONE
  3. LUNESTA [Concomitant]
     Active Substance: ESZOPICLONE
  4. FAMOTIDINE [Concomitant]
     Active Substance: FAMOTIDINE
  5. PANTOPRAZOLE SODIUM [Concomitant]
     Active Substance: PANTOPRAZOLE SODIUM

REACTIONS (11)
  - Nausea [None]
  - Anxiety [None]
  - Influenza like illness [None]
  - Pain [None]
  - Tinnitus [None]
  - Insomnia [None]
  - Migraine [None]
  - Palpitations [None]
  - Hyperhidrosis [None]
  - Constipation [None]
  - Loss of personal independence in daily activities [None]

NARRATIVE: CASE EVENT DATE: 20211106
